FAERS Safety Report 7818206-8 (Version None)
Quarter: 2011Q4

REPORT INFORMATION
  Report Type: 
  Country: None (occurrence: None)
  Receive Date: 20111017
  Receipt Date: 20111003
  Transmission Date: 20120403
  Serious: Yes (Hospitalization)
  Sender: FDA-Public Use
  Company Number: PHHY2011US87387

PATIENT
  Sex: Female
  Weight: 58.684 kg

DRUGS (20)
  1. COLACE [Concomitant]
     Dosage: 1 DF, BID
     Route: 048
  2. SENOKOT [Concomitant]
     Dosage: 1 DF, AT BEDTIME
     Route: 048
  3. DELTASONE [Concomitant]
     Dosage: 1 DF, DAILY
     Route: 048
  4. LASIX [Concomitant]
     Dosage: 20 MG, UNK
     Route: 048
  5. VASOTEC [Concomitant]
     Dosage: 1 DF, DAILY
     Route: 048
  6. DIFLUCAN [Concomitant]
     Dosage: 4 DF, DAILY
     Route: 048
  7. MYFORTIC [Suspect]
     Indication: RENAL TRANSPLANT
     Dosage: 3 DF, BID (180 MG)
     Route: 048
  8. PROGRAF [Concomitant]
     Dosage: 3 DF, BID
     Route: 048
  9. SENSIPAR [Concomitant]
     Dosage: 1 DF, DAILY
     Route: 048
  10. VITAMIN D [Concomitant]
     Dosage: 1 DF, QW
     Dates: start: 20110506
  11. MACROBID [Concomitant]
     Dosage: 100 MG, UNK
     Route: 048
  12. MAG-OX [Concomitant]
     Dosage: 1 DF, DAILY
     Route: 048
  13. LOPRESSOR [Concomitant]
     Dosage: 1 DF, BID
     Route: 048
  14. HUMULIN 70/30 [Concomitant]
     Dosage: 18 U, BID
  15. ZOCOR [Concomitant]
     Dosage: 1 DF, EVERY MOUTH
     Route: 048
  16. PEPCID [Concomitant]
     Dosage: 1 DF, AT BEDTIME
     Route: 048
  17. DIFLUCAN [Concomitant]
     Dosage: 2 DF, DAILY
  18. HUMULIN 70/30 [Concomitant]
     Dosage: 28 U, BID
     Dates: start: 20101102
  19. ASPIRIN [Concomitant]
     Dosage: 1 DF, DAILY
  20. NORVASC [Concomitant]
     Dosage: 5 MG, UNK
     Route: 048
     Dates: start: 20101122

REACTIONS (36)
  - HYPERGLYCAEMIA [None]
  - LEUKOCYTOSIS [None]
  - CRYPTOCOCCOSIS [None]
  - ELECTROLYTE IMBALANCE [None]
  - CONFUSIONAL STATE [None]
  - HYPOALBUMINAEMIA [None]
  - DIABETIC KETOACIDOSIS [None]
  - MALAISE [None]
  - ASTHENIA [None]
  - WEIGHT DECREASED [None]
  - ACTIVITIES OF DAILY LIVING IMPAIRED [None]
  - COMMUNICATION DISORDER [None]
  - GAIT DISTURBANCE [None]
  - PNEUMONIA [None]
  - HAEMORRHAGE [None]
  - URINARY INCONTINENCE [None]
  - DISORIENTATION [None]
  - ANAEMIA [None]
  - RENAL FAILURE ACUTE [None]
  - HYPOMAGNESAEMIA [None]
  - MENTAL STATUS CHANGES [None]
  - HYPERTRIGLYCERIDAEMIA [None]
  - HYPERCHOLESTEROLAEMIA [None]
  - HYPOPHAGIA [None]
  - DECREASED APPETITE [None]
  - PYREXIA [None]
  - MENINGITIS CRYPTOCOCCAL [None]
  - COGNITIVE DISORDER [None]
  - ENCEPHALITIC INFECTION [None]
  - MOBILITY DECREASED [None]
  - THROMBOCYTOPENIA [None]
  - HYPOKALAEMIA [None]
  - HALLUCINATION, VISUAL [None]
  - NERVOUS SYSTEM DISORDER [None]
  - BALANCE DISORDER [None]
  - URINARY TRACT INFECTION ENTEROCOCCAL [None]
